FAERS Safety Report 5895501-3 (Version None)
Quarter: 2008Q3

REPORT INFORMATION
  Report Type: 
  Country: None (occurrence: None)
  Receive Date: 20080922
  Receipt Date: 20080916
  Transmission Date: 20090109
  Serious: Yes (Life-Threatening)
  Sender: FDA-Public Use
  Company Number: 2008SP019085

PATIENT
  Age: 60 Year
  Sex: Male

DRUGS (6)
  1. TEMODAL [Suspect]
     Indication: GLIOBLASTOMA MULTIFORME
     Dosage: 160 MG;QD;PO
     Route: 048
     Dates: end: 20080811
  2. TEMODAL [Suspect]
     Indication: GLIOBLASTOMA MULTIFORME
     Dosage: 160 MG;QD;PO
     Route: 048
     Dates: start: 20080818, end: 20080819
  3. DEXAMETHASONE [Concomitant]
  4. FAMOTIDINE [Concomitant]
  5. TRIMETHOPRIM [Concomitant]
  6. SULFAMETHOXAZOLE [Concomitant]

REACTIONS (3)
  - ABDOMINAL PAIN UPPER [None]
  - PAIN [None]
  - PULMONARY EMBOLISM [None]
